FAERS Safety Report 7538089-3 (Version None)
Quarter: 2011Q2

REPORT INFORMATION
  Report Type: 
  Country: None (occurrence: None)
  Receive Date: 20110609
  Receipt Date: 20010401
  Transmission Date: 20111010
  Serious: Yes (Death)
  Sender: FDA-Public Use
  Company Number: PHBS2001VE13563

PATIENT
  Age: 42 Year
  Sex: Female

DRUGS (2)
  1. FEMARA [Suspect]
     Dosage: 2.5 MG, UNK
  2. CHEMOTHERAPEUTICS,OTHER [Concomitant]
     Dosage: UNK

REACTIONS (1)
  - RESPIRATORY ARREST [None]
